FAERS Safety Report 17995372 (Version 1)
Quarter: 2020Q3

REPORT INFORMATION
  Report Type: Spontaneous
  Country: IT (occurrence: IT)
  Receive Date: 20200708
  Receipt Date: 20200708
  Transmission Date: 20201103
  Serious: Yes (Other)
  Sender: FDA-Public Use
  Company Number: NVSC2020IT186243

PATIENT
  Age: 66 Year
  Sex: Female

DRUGS (6)
  1. GABAPENTIN. [Suspect]
     Active Substance: GABAPENTIN
     Indication: BIPOLAR DISORDER
     Dosage: 200 MG, QD
     Route: 048
     Dates: start: 20200101, end: 20200503
  2. CARBOLITHIUM [Suspect]
     Active Substance: LITHIUM CARBONATE
     Indication: BIPOLAR DISORDER
     Dosage: 1 DF, QD
     Route: 048
     Dates: start: 20200101, end: 20200503
  3. LOSARTAN. [Concomitant]
     Active Substance: LOSARTAN
     Indication: PRODUCT USED FOR UNKNOWN INDICATION
     Dosage: UNK
     Route: 048
  4. CYMBALTA [Suspect]
     Active Substance: DULOXETINE HYDROCHLORIDE
     Indication: BIPOLAR DISORDER
     Dosage: 1 DF, QD
     Route: 048
     Dates: start: 20200426, end: 20200503
  5. OLANZAPINE. [Concomitant]
     Active Substance: OLANZAPINE
     Indication: PRODUCT USED FOR UNKNOWN INDICATION
     Dosage: 5 MG
     Route: 048
  6. ALPRAZOLAM. [Suspect]
     Active Substance: ALPRAZOLAM
     Indication: INTENTIONAL PRODUCT MISUSE
     Dosage: 1.25 MG
     Route: 048
     Dates: start: 20200503, end: 20200503

REACTIONS (4)
  - Intentional product misuse [Recovering/Resolving]
  - Sopor [Recovering/Resolving]
  - Fall [Recovering/Resolving]
  - Confusional state [Recovering/Resolving]

NARRATIVE: CASE EVENT DATE: 20200503
